FAERS Safety Report 17135302 (Version 5)
Quarter: 2019Q4

REPORT INFORMATION
  Report Type: Spontaneous
  Country: GB (occurrence: GB)
  Receive Date: 20191210
  Receipt Date: 20191231
  Transmission Date: 20200122
  Serious: Yes (Life-Threatening, Hospitalization, Other)
  Sender: FDA-Public Use
  Company Number: GB-PFIZER INC-2019532809

PATIENT
  Age: 79 Year
  Sex: Male
  Weight: 80 kg

DRUGS (7)
  1. AMLODIPINE BESILATE [Suspect]
     Active Substance: AMLODIPINE BESYLATE
     Dosage: SINGLE (300 TABLETS IN UNCERTAIN PROPORTIONS)
  2. ISOSORBIDE MONONITRATE. [Suspect]
     Active Substance: ISOSORBIDE MONONITRATE
     Dosage: SINGLE (300 TABLETS IN UNCERTAIN PROPORTIONS)
  3. BISOPROLOL FUMARATE. [Suspect]
     Active Substance: BISOPROLOL FUMARATE
     Dosage: SINGLE (300 TABLETS IN UNCERTAIN PROPORTIONS)
  4. ASPIRIN [ACETYLSALICYLIC ACID] [Suspect]
     Active Substance: ASPIRIN
     Dosage: SINGLE (300 TABLETS IN UNCERTAIN PROPORTIONS)
  5. DIAZEPAM. [Suspect]
     Active Substance: DIAZEPAM
     Dosage: SINGLE (300 TABLETS IN UNCERTAIN PROPORTIONS)
  6. DOXAZOSIN MESILATE [Suspect]
     Active Substance: DOXAZOSIN MESYLATE
     Dosage: SINGLE (300 TABLETS IN UNCERTAIN PROPORTIONS)
  7. RAMIPRIL. [Suspect]
     Active Substance: RAMIPRIL
     Dosage: SINGLE (300 TABLETS IN UNCERTAIN PROPORTIONS)

REACTIONS (5)
  - Hypotension [Recovered/Resolved]
  - Acute kidney injury [Recovered/Resolved]
  - Cardiogenic shock [Recovered/Resolved]
  - Bradycardia [Recovered/Resolved]
  - Intentional overdose [Recovered/Resolved]
